FAERS Safety Report 19558737 (Version 1)
Quarter: 2021Q3

REPORT INFORMATION
  Report Type: Spontaneous
  Country: US (occurrence: US)
  Receive Date: 20210714
  Receipt Date: 20210714
  Transmission Date: 20211014
  Serious: No
  Sender: FDA-Public Use
  Company Number: US-SK LIFE SCIENCE, INC-SKPVG-2020-000202

PATIENT

DRUGS (5)
  1. XCOPRI [Suspect]
     Active Substance: CENOBAMATE
     Indication: SEIZURE
     Dosage: 12.5/25MG
     Route: 065
     Dates: start: 202007, end: 202007
  2. XCOPRI [Suspect]
     Active Substance: CENOBAMATE
     Dosage: 100 MILLIGRAM
     Route: 065
     Dates: start: 202007, end: 202007
  3. XCOPRI [Suspect]
     Active Substance: CENOBAMATE
     Dosage: 50 MILLIGRAM
     Route: 065
     Dates: start: 20200911
  4. XCOPRI [Suspect]
     Active Substance: CENOBAMATE
     Dosage: 50 MILLIGRAM
     Route: 065
     Dates: start: 202007, end: 202007
  5. XCOPRI [Suspect]
     Active Substance: CENOBAMATE
     Dosage: 12.5/25MG
     Route: 065
     Dates: start: 202008, end: 2020

REACTIONS (2)
  - Migraine [Unknown]
  - Seizure [Unknown]

NARRATIVE: CASE EVENT DATE: 202008
